FAERS Safety Report 7376932-1 (Version None)
Quarter: 2011Q1

REPORT INFORMATION
  Report Type: 
  Country: None (occurrence: None)
  Receive Date: 20110328
  Receipt Date: 20110301
  Transmission Date: 20110831
  Serious: Yes (Other)
  Sender: FDA-Public Use
  Company Number: GB-RANBAXY-2011R1-42902

PATIENT
  Age: 26 Year
  Sex: Female

DRUGS (6)
  1. LACOSAMIDE [Interacting]
     Dosage: 200 MG, UNK
     Route: 065
  2. LACOSAMIDE [Interacting]
     Dosage: 350 MG, UNK
     Route: 065
  3. LACOSAMIDE [Interacting]
     Dosage: 300 MG, UNK
     Route: 065
  4. OXCARBAZEPINE [Interacting]
     Dosage: 1500 MG, UNK
     Route: 065
  5. LACOSAMIDE [Interacting]
     Indication: PRODUCT USED FOR UNKNOWN INDICATION
     Dosage: UNK
     Route: 065
  6. OXCARBAZEPINE [Suspect]
     Indication: EPILEPSY
     Dosage: 1800 MG, UNK
     Route: 065

REACTIONS (4)
  - ATAXIA [None]
  - NEUROTOXICITY [None]
  - DRUG INTERACTION [None]
  - DIPLOPIA [None]
